FAERS Safety Report 5068596-7 (Version None)
Quarter: 2006Q3

REPORT INFORMATION
  Report Type: 
  Country: None (occurrence: None)
  Receive Date: 20060802
  Receipt Date: 20051220
  Transmission Date: 20061208
  Serious: Yes (Life-Threatening, Disabling, Other)
  Sender: FDA-Public Use
  Company Number: US-BRISTOL-MYERS SQUIBB COMPANY-13223599

PATIENT
  Age: 75 Year
  Sex: Male
  Weight: 112 kg

DRUGS (16)
  1. COUMADIN [Suspect]
     Indication: CARDIAC FLUTTER
     Dosage: 5 MG AND 10 MG ON ALTERNATING DAYS
     Route: 048
     Dates: start: 20000101
  2. COUMADIN [Suspect]
     Indication: CARDIAC FIBRILLATION
     Dosage: 5 MG AND 10 MG ON ALTERNATING DAYS
     Route: 048
     Dates: start: 20000101
  3. ASPIRIN [Suspect]
     Indication: ATRIOVENTRICULAR BLOCK
     Route: 048
     Dates: start: 20050401
  4. PLAVIX [Suspect]
     Indication: ATRIOVENTRICULAR BLOCK
     Route: 048
     Dates: start: 20050401
  5. PLAVIX [Suspect]
     Indication: ANGINA PECTORIS
     Route: 048
     Dates: start: 20050401
  6. BETAPACE AF [Concomitant]
     Dates: start: 20000101
  7. CLONAZEPAM [Concomitant]
     Dates: start: 20050101
  8. LIPITOR [Concomitant]
     Dosage: AT BEDTIME
     Dates: start: 20050101
  9. MYSOLINE [Concomitant]
     Indication: ESSENTIAL TREMOR
     Dates: start: 20050101
  10. LASIX [Concomitant]
  11. ALTACE [Concomitant]
  12. GLUCOSAMINE [Concomitant]
  13. POTASSIUM CHLORIDE [Concomitant]
  14. ACETAMINOPHEN [Concomitant]
  15. PERCOCET [Concomitant]
  16. LORTAB [Concomitant]
     Indication: SPINAL COLUMN STENOSIS

REACTIONS (2)
  - CONTUSION [None]
  - GINGIVAL BLEEDING [None]
